FAERS Safety Report 8406265-3 (Version None)
Quarter: 2012Q2

REPORT INFORMATION
  Report Type: 
  Country: None (occurrence: None)
  Receive Date: 20120604
  Receipt Date: 20120529
  Transmission Date: 20120825
  Serious: Yes (Hospitalization)
  Sender: FDA-Public Use
  Company Number: US-BAYER-2012-023591

PATIENT
  Age: 46 Year
  Sex: Female

DRUGS (10)
  1. VITAMIN C [Concomitant]
     Dosage: DAILY, UNK
     Route: 048
     Dates: start: 20090422
  2. CHONDROITIN W/GLUCOSAMINE [Concomitant]
     Dosage: DAILY, UNK
     Route: 048
     Dates: start: 20090422
  3. MULTI-VITAMIN [Concomitant]
     Dosage: DAILY
     Route: 048
     Dates: start: 20090422
  4. YASMIN [Suspect]
     Dosage: UNK
     Dates: start: 20090224, end: 20090423
  5. FLUOXETINE [Concomitant]
  6. CALCIUM WITH VITAMIN D [Concomitant]
     Dosage: 500/200 INTERNATIONAL UNITS DAILY, UNK
     Route: 048
     Dates: start: 20090422
  7. CHONDROITIN W/GLUCOSAMINE [Concomitant]
     Dosage: DAILY, UNK
     Route: 048
     Dates: start: 20090422
  8. DROSPIRENONE AND ETHINYL ESTRADIOL [Suspect]
     Dosage: UNK
     Dates: start: 20090224, end: 20090423
  9. ASPIRIN [Concomitant]
     Dosage: 81 MG, DAILY, UNK
     Route: 048
     Dates: start: 20090422
  10. YAZ [Suspect]
     Dosage: UNK
     Dates: start: 20090224, end: 20090423

REACTIONS (6)
  - GENERAL PHYSICAL HEALTH DETERIORATION [None]
  - EMOTIONAL DISTRESS [None]
  - ANXIETY [None]
  - INJURY [None]
  - PULMONARY EMBOLISM [None]
  - PAIN [None]
